FAERS Safety Report 25975975 (Version 1)
Quarter: 2025Q4

REPORT INFORMATION
  Report Type: Spontaneous
  Country: JP (occurrence: JP)
  Receive Date: 20251029
  Receipt Date: 20251029
  Transmission Date: 20260117
  Serious: Yes (Hospitalization, Other)
  Sender: GLAXOSMITHKLINE
  Company Number: JP-GSK-JP2025JPN138358

PATIENT
  Sex: Female
  Weight: 32 kg

DRUGS (4)
  1. DAPRODUSTAT [Suspect]
     Active Substance: DAPRODUSTAT
     Indication: Nephrogenic anaemia
     Dosage: UNK
  2. PREDNISOLONE [Concomitant]
     Active Substance: PREDNISOLONE
     Indication: Rheumatic disorder
     Dosage: 7.5 MG OR 5 MG
  3. AZULFIDINE [Concomitant]
     Active Substance: SULFASALAZINE
     Indication: Rheumatic disorder
     Dosage: UNK
  4. DARBEPOETIN ALFA [Concomitant]
     Active Substance: DARBEPOETIN ALFA
     Indication: Nephrogenic anaemia
     Dosage: UNK

REACTIONS (2)
  - Thrombosis [Recovered/Resolved]
  - Pleural effusion [Recovered/Resolved]
